FAERS Safety Report 18619079 (Version 1)
Quarter: 2020Q4

REPORT INFORMATION
  Report Type: Spontaneous
  Country: CN (occurrence: CN)
  Receive Date: 20201215
  Receipt Date: 20201215
  Transmission Date: 20210114
  Serious: Yes (Other)
  Sender: FDA-Public Use
  Company Number: NVSC2020CN330455

PATIENT
  Age: 28 Year
  Sex: Male

DRUGS (5)
  1. PREDNISONE. [Suspect]
     Active Substance: PREDNISONE
     Indication: MULTIPLE SCLEROSIS
     Dosage: 0.5-1 MG/KG, QD (LONG TERM)
     Route: 048
  2. RITUXIMAB. [Suspect]
     Active Substance: RITUXIMAB
     Indication: MULTIPLE SCLEROSIS
     Dosage: UNK SECOND CYCLE
     Route: 065
  3. MYCOPHENOLATE MOFETIL. [Suspect]
     Active Substance: MYCOPHENOLATE MOFETIL
     Indication: MULTIPLE SCLEROSIS
     Dosage: 3 G, QD
     Route: 065
  4. CYCLOSPORINE. [Suspect]
     Active Substance: CYCLOSPORINE
     Indication: MULTIPLE SCLEROSIS
     Dosage: 4-5 MG/KG
     Route: 065
  5. CYCLOPHOSPHAMIDE. [Suspect]
     Active Substance: CYCLOPHOSPHAMIDE
     Indication: MULTIPLE SCLEROSIS
     Dosage: 10 G
     Route: 065

REACTIONS (2)
  - Multiple sclerosis relapse [Unknown]
  - Drug ineffective for unapproved indication [Unknown]
